FAERS Safety Report 4727005-5 (Version None)
Quarter: 2005Q3

REPORT INFORMATION
  Report Type: 
  Country: None (occurrence: None)
  Receive Date: 20050726
  Receipt Date: 20050726
  Transmission Date: 20060218
  Serious: No
  Sender: FDA-Public Use
  Company Number: None

PATIENT
  Age: 61 Year
  Sex: Male

DRUGS (10)
  1. SIMVASTATIN [Suspect]
     Indication: HYPERLIPIDAEMIA
     Dosage: 40MG PO QHS
     Route: 048
     Dates: start: 20040928, end: 20050301
  2. LOVASTATIN [Suspect]
     Indication: HYPERLIPIDAEMIA
     Dosage: 40MG PO QHS
     Route: 048
     Dates: start: 20050302, end: 20050616
  3. ASPIRIN [Concomitant]
  4. GUAIFENESIN DM [Concomitant]
  5. HYDROCHLOROTHIAZIDE [Concomitant]
  6. NOVOLIN 70/30 [Concomitant]
  7. LISINOPRIL [Concomitant]
  8. LOVASTATIN [Concomitant]
  9. QUININE SULFATE [Concomitant]
  10. ETODOLAC [Concomitant]

REACTIONS (4)
  - BLOOD CREATINE PHOSPHOKINASE INCREASED [None]
  - DYSPNOEA [None]
  - HYPOAESTHESIA [None]
  - MUSCLE SPASMS [None]
